FAERS Safety Report 6987771-5 (Version None)
Quarter: 2010Q3

REPORT INFORMATION
  Report Type: 
  Country: None (occurrence: None)
  Receive Date: 20100830
  Receipt Date: 20100727
  Transmission Date: 20110219
  Serious: No
  Sender: FDA-Public Use
  Company Number: 2010S1000603

PATIENT
  Age: 59 Year
  Sex: Female

DRUGS (12)
  1. PITAVASTATIN [Suspect]
     Indication: DYSLIPIDAEMIA
     Dosage: 2 MG;PO ; 2 MG;PO
     Route: 048
     Dates: start: 20100629, end: 20100713
  2. PITAVASTATIN [Suspect]
     Indication: DYSLIPIDAEMIA
     Dosage: 2 MG;PO ; 2 MG;PO
     Route: 048
     Dates: start: 20100715
  3. NEBIVOLOL [Concomitant]
  4. AMLODIPINE [Concomitant]
  5. K-DUR [Concomitant]
  6. VITAMIN D [Concomitant]
  7. CYMBALTA [Concomitant]
  8. XANAX [Concomitant]
  9. NORCO [Concomitant]
  10. ACCOLATE [Concomitant]
  11. AMBIEN [Concomitant]
  12. ADVAIR DISKUS 100/50 [Concomitant]

REACTIONS (2)
  - MALAISE [None]
  - OEDEMA [None]
